FAERS Safety Report 4810875-X (Version None)
Quarter: 2005Q4

REPORT INFORMATION
  Report Type: 
  Country: None (occurrence: None)
  Receive Date: 20051025
  Receipt Date: 20051012
  Transmission Date: 20060501
  Serious: Yes (Other)
  Sender: FDA-Public Use
  Company Number: US-2005-000878

PATIENT
  Age: 37 Year
  Sex: Male

DRUGS (5)
  1. BETASERON [Suspect]
     Indication: MULTIPLE SCLEROSIS
     Dosage: SUBCUTANEOUS
     Route: 058
     Dates: start: 20020101
  2. EFFEXOR [Concomitant]
  3. DEPAKOTE [Concomitant]
  4. DETROL [Concomitant]
  5. RETINOL (RETINOL) [Concomitant]

REACTIONS (4)
  - HEPATITIS ACUTE [None]
  - HEPATITIS C [None]
  - PHARMACEUTICAL PRODUCT COMPLAINT [None]
  - POOR QUALITY DRUG ADMINISTERED [None]
